FAERS Safety Report 8203205-7 (Version None)
Quarter: 2012Q1

REPORT INFORMATION
  Report Type: 
  Country: None (occurrence: None)
  Receive Date: 20120312
  Receipt Date: 20120306
  Transmission Date: 20120608
  Serious: Yes (Death)
  Sender: FDA-Public Use
  Company Number: GB-ROCHE-1005729

PATIENT
  Sex: Male

DRUGS (5)
  1. MABTHERA [Suspect]
     Indication: RHEUMATOID ARTHRITIS
  2. PYRIDOSTIGMINE BROMIDE [Concomitant]
     Indication: MYASTHENIA GRAVIS
  3. PREDNISONE [Concomitant]
  4. WARFARIN SODIUM [Concomitant]
     Indication: DEEP VEIN THROMBOSIS
  5. METHOTREXATE [Concomitant]

REACTIONS (4)
  - SEPSIS [None]
  - CARDIAC FAILURE CONGESTIVE [None]
  - DEATH [None]
  - MULTI-ORGAN FAILURE [None]
